FAERS Safety Report 8611151-X (Version None)
Quarter: 2012Q3

REPORT INFORMATION
  Report Type: 
  Country: None (occurrence: None)
  Receive Date: 20120822
  Receipt Date: 20120807
  Transmission Date: 20120928
  Serious: Yes (Death, Life-Threatening, Hospitalization)
  Sender: FDA-Public Use
  Company Number: JP-JNJFOC-20120807278

PATIENT
  Sex: Female
  Weight: 51 kg

DRUGS (45)
  1. VELCADE [Suspect]
     Route: 042
     Dates: start: 20120326
  2. VELCADE [Suspect]
     Route: 042
     Dates: start: 20120319
  3. VELCADE [Suspect]
     Indication: MULTIPLE MYELOMA
     Route: 042
     Dates: end: 20120419
  4. ZYVOX [Concomitant]
     Indication: STAPHYLOCOCCAL SEPSIS
     Route: 048
     Dates: start: 20120402, end: 20120416
  5. DOPAMINE HCL [Concomitant]
     Indication: STAPHYLOCOCCAL SEPSIS
     Route: 065
     Dates: start: 20120401, end: 20120502
  6. CARVEDILOL [Concomitant]
     Indication: CARDIAC FAILURE
     Route: 048
     Dates: start: 20120116, end: 20120416
  7. VELCADE [Suspect]
     Indication: RENAL AMYLOIDOSIS
     Route: 042
     Dates: start: 20120323
  8. TOLVAPTAN [Concomitant]
     Indication: CARDIAC FAILURE
     Route: 048
     Dates: start: 20120223, end: 20120416
  9. LOSARTAN POTASSIUM [Concomitant]
     Indication: CARDIAC AMYLOIDOSIS
     Route: 048
     Dates: start: 20120106, end: 20120416
  10. VELCADE [Suspect]
     Route: 042
     Dates: end: 20120419
  11. VELCADE [Suspect]
     Route: 042
     Dates: start: 20120319
  12. AMIODARONE HCL [Concomitant]
     Indication: CARDIAC AMYLOIDOSIS
     Route: 048
     Dates: start: 20120201, end: 20120416
  13. DEXAMETHASONE ACETATE [Concomitant]
     Indication: MULTIPLE MYELOMA
     Route: 048
     Dates: start: 20120314, end: 20120413
  14. LASIX [Concomitant]
     Indication: CARDIAC FAILURE
     Route: 048
     Dates: start: 20120106, end: 20120416
  15. VELCADE [Suspect]
     Route: 042
     Dates: end: 20120412
  16. ALBUMIN (HUMAN) [Concomitant]
     Indication: RENAL FAILURE ACUTE
     Route: 042
     Dates: start: 20120223, end: 20120226
  17. LASIX [Concomitant]
     Indication: RENAL FAILURE ACUTE
     Route: 048
     Dates: start: 20120106, end: 20120416
  18. VELCADE [Suspect]
     Route: 042
     Dates: start: 20120323
  19. VELCADE [Suspect]
     Route: 042
     Dates: start: 20120326
  20. VELCADE [Suspect]
     Route: 042
     Dates: end: 20120412
  21. VELCADE [Suspect]
     Route: 042
     Dates: start: 20120326
  22. AZOSEMIDE [Concomitant]
     Indication: CARDIAC FAILURE
     Route: 048
     Dates: start: 20120103, end: 20120416
  23. FORSENID [Concomitant]
     Indication: CONSTIPATION
     Route: 048
     Dates: start: 20120111, end: 20120416
  24. TRICHLORMETHIAZIDE [Concomitant]
     Indication: CARDIAC FAILURE
     Route: 048
     Dates: start: 20120221, end: 20120416
  25. VALTREX [Concomitant]
     Indication: MULTIPLE MYELOMA
     Route: 048
     Dates: start: 20120314, end: 20120416
  26. VELCADE [Suspect]
     Route: 042
     Dates: start: 20120316
  27. VELCADE [Suspect]
     Route: 042
     Dates: start: 20120323
  28. FENTANYL CITRATE [Concomitant]
     Indication: CANCER PAIN
     Route: 042
     Dates: start: 20120426, end: 20120502
  29. AZOSEMIDE [Concomitant]
     Indication: RENAL FAILURE ACUTE
     Route: 048
     Dates: start: 20120103, end: 20120416
  30. EPLERENONE [Concomitant]
     Indication: CARDIAC FAILURE
     Route: 048
     Dates: start: 20120218, end: 20120416
  31. AN UNKNOWN MEDICATION [Concomitant]
     Indication: CONSTIPATION
     Route: 048
     Dates: start: 20120228, end: 20120410
  32. FENTANYL-100 [Suspect]
     Indication: CANCER PAIN
     Route: 062
     Dates: start: 20120425, end: 20120425
  33. VELCADE [Suspect]
     Route: 042
     Dates: end: 20120416
  34. VELCADE [Suspect]
     Route: 042
     Dates: end: 20120412
  35. VELCADE [Suspect]
     Route: 042
     Dates: end: 20120409
  36. VELCADE [Suspect]
     Route: 042
     Dates: start: 20120316
  37. VELCADE [Suspect]
     Route: 042
     Dates: end: 20120409
  38. LOSARTAN POTASSIUM [Concomitant]
     Indication: RENAL FAILURE ACUTE
     Route: 048
     Dates: start: 20120106, end: 20120416
  39. VELCADE [Suspect]
     Route: 042
     Dates: start: 20120319
  40. VELCADE [Suspect]
     Route: 042
     Dates: end: 20120409
  41. VELCADE [Suspect]
     Route: 042
     Dates: end: 20120416
  42. VELCADE [Suspect]
     Indication: CARDIAC AMYLOIDOSIS
     Route: 042
     Dates: end: 20120419
  43. VELCADE [Suspect]
     Route: 042
     Dates: end: 20120416
  44. VELCADE [Suspect]
     Route: 042
     Dates: start: 20120316
  45. OMEPRAZOLE [Concomitant]
     Indication: GASTRIC ULCER
     Route: 048
     Dates: start: 20120323, end: 20120416

REACTIONS (7)
  - CARDIAC FAILURE [None]
  - CHEYNE-STOKES RESPIRATION [None]
  - DEPRESSED LEVEL OF CONSCIOUSNESS [None]
  - LIVER DISORDER [None]
  - PAIN [None]
  - PLATELET COUNT DECREASED [None]
  - CARDIAC AMYLOIDOSIS [None]
